FAERS Safety Report 4954337-8 (Version None)
Quarter: 2006Q1

REPORT INFORMATION
  Report Type: 
  Country: None (occurrence: None)
  Receive Date: 20060327
  Receipt Date: 20051207
  Transmission Date: 20060701
  Serious: Yes (Hospitalization)
  Sender: FDA-Public Use
  Company Number: US-MERCK-0512USA01046

PATIENT
  Age: 70 Year
  Sex: Male
  Weight: 85 kg

DRUGS (7)
  1. VIOXX [Suspect]
     Indication: ARTHRALGIA
     Route: 048
     Dates: start: 20000313, end: 20020101
  2. ISOSORBIDE DINITRATE [Concomitant]
     Route: 065
  3. PROSCAR [Concomitant]
     Route: 048
  4. LIPITOR [Concomitant]
     Indication: ARTERIAL DISORDER
     Route: 065
     Dates: start: 19930101
  5. LIPITOR [Concomitant]
     Indication: BLOOD CHOLESTEROL INCREASED
     Route: 065
     Dates: start: 19930101
  6. TOPROL-XL [Concomitant]
     Indication: CHEST PAIN
     Route: 065
     Dates: start: 19980101
  7. TOPROL-XL [Concomitant]
     Indication: HYPERTENSION
     Route: 065
     Dates: start: 19980101

REACTIONS (21)
  - ACUTE MYOCARDIAL INFARCTION [None]
  - ARTERIOSCLEROSIS [None]
  - BENIGN PROSTATIC HYPERPLASIA [None]
  - CARDIAC FAILURE CONGESTIVE [None]
  - CHEST PAIN [None]
  - CORONARY ARTERY DISEASE [None]
  - CORONARY ARTERY STENOSIS [None]
  - DEHYDRATION [None]
  - DEPRESSION [None]
  - GYNAECOMASTIA [None]
  - INSOMNIA [None]
  - KNEE ARTHROPLASTY [None]
  - LEUKOPENIA [None]
  - MITRAL VALVE INCOMPETENCE [None]
  - NAUSEA [None]
  - ORAL INTAKE REDUCED [None]
  - PEPTIC ULCER [None]
  - TENDON INJURY [None]
  - VENTRICULAR DYSFUNCTION [None]
  - VENTRICULAR HYPOKINESIA [None]
  - VOMITING [None]
